FAERS Safety Report 21045258 (Version 1)
Quarter: 2022Q3

REPORT INFORMATION
  Report Type: Spontaneous
  Country: US (occurrence: US)
  Receive Date: 20220705
  Receipt Date: 20220705
  Transmission Date: 20221026
  Serious: No
  Sender: FDA-Public Use
  Company Number: US-drreddys-SPO/USA/22/0151601

PATIENT
  Age: 26 Year
  Sex: Female

DRUGS (1)
  1. ZENATANE [Suspect]
     Active Substance: ISOTRETINOIN
     Indication: Acne
     Dosage: RMA ISSUE DATE: 15 FEBRUARY 2022 09:53:30 AM, 11 MARCH 2022 10:08:03 AM, 18 APRIL 2022 06:11:33 PM,

REACTIONS (1)
  - Constipation [Unknown]
